FAERS Safety Report 7890134-1 (Version None)
Quarter: 2011Q4

REPORT INFORMATION
  Report Type: 
  Country: None (occurrence: None)
  Receive Date: 20111103
  Receipt Date: 20111031
  Transmission Date: 20120403
  Serious: Yes (Hospitalization)
  Sender: FDA-Public Use
  Company Number: JP-AMGEN-KDC441366

PATIENT
  Age: 86 Year
  Sex: Female
  Weight: 46 kg

DRUGS (9)
  1. MOHRUS TAPE [Concomitant]
     Dosage: ADEQUATE DOSE
     Route: 062
     Dates: start: 20100916, end: 20100916
  2. DENOSUMAB [Suspect]
     Indication: OSTEOPOROSIS
     Dosage: UNK UNK, Q6MO
     Route: 058
     Dates: start: 20081224
  3. MOHRUS TAPE [Concomitant]
     Dosage: ADEQUATE DOSE
     Route: 062
     Dates: start: 20100911, end: 20100916
  4. DENOSUMAB [Suspect]
     Dosage: DENOSUMAB 60MG OR PLACEBO
     Route: 058
     Dates: start: 20081224
  5. MICARDIS [Concomitant]
     Indication: HYPERTENSION
     Route: 048
     Dates: start: 20100122, end: 20100916
  6. MOHRUS TAPE [Concomitant]
     Indication: MUSCULOSKELETAL PAIN
     Dosage: UNK UNK, UNK
     Route: 062
     Dates: start: 20100916, end: 20100916
  7. MICARDIS [Concomitant]
     Route: 048
     Dates: start: 20100123, end: 20100916
  8. NORVASC [Concomitant]
     Indication: HYPERTENSION
     Route: 048
     Dates: start: 20100722, end: 20100916
  9. NEW CALCICHEW D3 [Concomitant]
     Indication: OSTEOPOROSIS
     Route: 048
     Dates: start: 20081113

REACTIONS (1)
  - CEREBRAL INFARCTION [None]
